FAERS Safety Report 8828694 (Version 1)
Quarter: 2012Q4

REPORT INFORMATION
  Report Type: 
  Country: US (occurrence: US)
  Receive Date: 20121008
  Receipt Date: 20121008
  Transmission Date: 20130627
  Serious: Yes (Other)
  Sender: FDA-Public Use
  Company Number: US-UCBSA-068224

PATIENT
  Age: 35 Year
  Sex: Female

DRUGS (3)
  1. KEPPRA [Suspect]
     Indication: CONVULSION
  2. KEPPRA [Suspect]
     Indication: CONVULSION
     Dosage: HIGHER DOSE
  3. COPAXONE [Suspect]
     Indication: MULTIPLE SCLEROSIS
     Dosage: 20 MG
     Dates: start: 20120413

REACTIONS (4)
  - Grand mal convulsion [Recovered/Resolved]
  - Multiple sclerosis relapse [Unknown]
  - Amnesia [Not Recovered/Not Resolved]
  - Somnolence [Unknown]
